FAERS Safety Report 9637030 (Version 1)
Quarter: 2013Q4

REPORT INFORMATION
  Report Type: Spontaneous
  Country: US (occurrence: None)
  Receive Date: 20131011
  Receipt Date: 20131011
  Transmission Date: 20140711
  Serious: No
  Sender: FDA-Public Use
  Company Number: SP06993

PATIENT
  Age: 50 Year
  Sex: Male

DRUGS (1)
  1. FULYZAQ [Suspect]
     Indication: DIARRHOEA
     Dosage: 2 DOSAGE FORMS (1 DOSAGE FORMS, 2 IN 1 D), ORAL
     Route: 048
     Dates: start: 20130618, end: 20130906

REACTIONS (2)
  - Muscle spasms [None]
  - Drug ineffective [None]
